FAERS Safety Report 16367423 (Version 5)
Quarter: 2019Q3

REPORT INFORMATION
  Report Type: Spontaneous
  Country: US (occurrence: US)
  Receive Date: 20190529
  Receipt Date: 20190919
  Transmission Date: 20191004
  Serious: Yes (Other)
  Sender: FDA-Public Use
  Company Number: US-PFIZER INC-2019163417

PATIENT
  Age: 9 Year
  Sex: Male
  Weight: 31.4 kg

DRUGS (5)
  1. SINGULAIR [Concomitant]
     Active Substance: MONTELUKAST SODIUM
     Indication: ASTHMA
     Dosage: 5 MG, UNK
  2. RAPAMUNE [Suspect]
     Active Substance: SIROLIMUS
     Indication: LYMPHANGIOMA
     Dosage: 1 MG, 1X/DAY (ONCE A DAY)
     Route: 048
     Dates: start: 201903
  3. RAPAMUNE [Suspect]
     Active Substance: SIROLIMUS
     Dosage: 1.4 ML, 2X/DAY [1.4 ML (1.4 MG TOTAL) BY MOUTH EVERY TWELVE HOURS]
     Route: 048
  4. RAPAMUNE [Suspect]
     Active Substance: SIROLIMUS
     Dosage: 1.8 ML, 2X/DAY
     Route: 048
  5. RAPAMUNE [Suspect]
     Active Substance: SIROLIMUS
     Dosage: 1.6 ML, 2X/DAY, ((1.6 MG TOTAL) BY MOUTH EVERY TWELVE HOURS. MIX WITH JUICE)
     Route: 048

REACTIONS (7)
  - Drug level below therapeutic [Unknown]
  - Off label use [Unknown]
  - Weight increased [Unknown]
  - Product use in unapproved indication [Unknown]
  - Product use issue [Unknown]
  - Flatulence [Unknown]
  - Bile duct obstruction [Unknown]

NARRATIVE: CASE EVENT DATE: 201903
